FAERS Safety Report 4585405-0 (Version None)
Quarter: 2005Q1

REPORT INFORMATION
  Report Type: 
  Country: None (occurrence: None)
  Receive Date: 20050214
  Receipt Date: 20040909
  Transmission Date: 20050727
  Serious: Yes (Death)
  Sender: FDA-Public Use
  Company Number: 05-030

PATIENT
  Sex: Female

DRUGS (3)
  1. DEXAMETHASONE [Suspect]
     Indication: DISEASE RECURRENCE
     Dosage: 40MG
     Dates: start: 20011105, end: 20011209
  2. DEXAMETHASONE [Suspect]
     Indication: MULTIPLE MYELOMA
     Dosage: 40MG
     Dates: start: 20011105, end: 20011209
  3. GENASENSE [Concomitant]

REACTIONS (1)
  - MULTIPLE MYELOMA [None]
